FAERS Safety Report 12947974 (Version 1)
Quarter: 2016Q4

REPORT INFORMATION
  Report Type: Report from Study
  Country: None (occurrence: US)
  Receive Date: 20161117
  Receipt Date: 20161117
  Transmission Date: 20170207
  Serious: Yes (Hospitalization, Other)
  Sender: FDA-Public Use
  Company Number: US-ABBVIE-16K-163-1674886-00

PATIENT
  Age: 95 Year
  Sex: Male
  Weight: 77.18 kg

DRUGS (2)
  1. HUMIRA [Suspect]
     Active Substance: ADALIMUMAB
     Indication: PSORIATIC ARTHROPATHY
  2. HUMIRA [Suspect]
     Active Substance: ADALIMUMAB
     Indication: PSORIASIS
     Route: 058
     Dates: start: 201601, end: 201603

REACTIONS (7)
  - Poor peripheral circulation [Recovered/Resolved]
  - Carotid artery occlusion [Recovered/Resolved]
  - Carotid artery occlusion [Recovered/Resolved]
  - Hypoaesthesia [Recovering/Resolving]
  - Limb injury [Not Recovered/Not Resolved]
  - Staphylococcal infection [Recovered/Resolved]
  - Aneurysm [Recovering/Resolving]

NARRATIVE: CASE EVENT DATE: 2016
